FAERS Safety Report 6992315-8 (Version None)
Quarter: 2010Q3

REPORT INFORMATION
  Report Type: 
  Country: None (occurrence: None)
  Receive Date: 20100917
  Receipt Date: 20100908
  Transmission Date: 20110219
  Serious: Yes (Other)
  Sender: FDA-Public Use
  Company Number: US-SANOFI-AVENTIS-2010SA050599

PATIENT
  Age: 61 Year
  Sex: Male
  Weight: 113 kg

DRUGS (8)
  1. LANTUS [Suspect]
     Indication: TYPE 2 DIABETES MELLITUS
     Dosage: DOSE:60 UNIT(S)
     Route: 058
     Dates: start: 20070101, end: 20100801
  2. LANTUS [Suspect]
     Dosage: DOSE:70 UNIT(S)
     Route: 058
     Dates: start: 20100801, end: 20100821
  3. LANTUS [Suspect]
     Dosage: DOSE:80 UNIT(S)
     Route: 058
     Dates: start: 20100821
  4. OPTICLICK [Suspect]
     Indication: TYPE 2 DIABETES MELLITUS
     Dates: start: 20070101, end: 20100822
  5. DECADRON [Suspect]
  6. NOVOLOG [Concomitant]
     Indication: TYPE 2 DIABETES MELLITUS
  7. LIPITOR [Concomitant]
  8. LISINOPRIL [Concomitant]
     Indication: HYPERTENSION

REACTIONS (4)
  - BLOOD GLUCOSE INCREASED [None]
  - GLIOBLASTOMA MULTIFORME [None]
  - SPEECH DISORDER [None]
  - WEIGHT INCREASED [None]
